FAERS Safety Report 7319730-7 (Version None)
Quarter: 2011Q1

REPORT INFORMATION
  Report Type: 
  Country: None (occurrence: None)
  Receive Date: 20110228
  Receipt Date: 20100826
  Transmission Date: 20110831
  Serious: No
  Sender: FDA-Public Use
  Company Number: A0877900A

PATIENT
  Age: 43 Year
  Sex: Female

DRUGS (3)
  1. LAMOTRIGINE [Suspect]
  2. LAMICTAL [Suspect]
     Indication: BIPOLAR DISORDER
     Dosage: 200MG PER DAY
     Route: 048
     Dates: start: 20070101, end: 20100101
  3. CELEXA [Concomitant]

REACTIONS (2)
  - PERIODONTAL DISEASE [None]
  - BONE DENSITY DECREASED [None]
